FAERS Safety Report 20713139 (Version 2)
Quarter: 2022Q2

REPORT INFORMATION
  Report Type: Spontaneous
  Country: JP (occurrence: None)
  Receive Date: 20220415
  Receipt Date: 20220615
  Transmission Date: 20220721
  Serious: Yes (Hospitalization, Other)
  Sender: FDA-Public Use
  Company Number: 2022A146181

PATIENT
  Age: 74 Year
  Sex: Female
  Weight: 45 kg

DRUGS (8)
  1. NEXIUM [Suspect]
     Active Substance: ESOMEPRAZOLE MAGNESIUM
     Route: 048
     Dates: end: 20220126
  2. OXALIPLATIN [Suspect]
     Active Substance: OXALIPLATIN
     Indication: Colon cancer
     Dosage: NUMBER OF SEPARATE DOSAGES UNKNOWN123.0MG UNKNOWN
     Route: 041
     Dates: start: 20211214, end: 20211214
  3. OXALIPLATIN [Suspect]
     Active Substance: OXALIPLATIN
     Indication: Colon cancer
     Dosage: NUMBER OF SEPARATE DOSAGES UNKNOWN115.6MG UNKNOWN
     Route: 041
     Dates: start: 20211228, end: 20211228
  4. MAGNESIUM OXIDE [Suspect]
     Active Substance: MAGNESIUM OXIDE
     Indication: Constipation
     Dosage: AFTER EACH MEAL
     Route: 048
     Dates: start: 20220114, end: 20220126
  5. MINOCYCLINE HYDROCHLORIDE [Suspect]
     Active Substance: MINOCYCLINE HYDROCHLORIDE
     Indication: Dermatitis acneiform
     Route: 048
     Dates: start: 20211228, end: 20220126
  6. AMLODIPINE\TELMISARTAN [Concomitant]
     Active Substance: AMLODIPINE\TELMISARTAN
     Dosage: AFTER BREAKFAST
     Route: 048
  7. ATORVASTATIN [Concomitant]
     Active Substance: ATORVASTATIN
     Dosage: AFTER BREAKFAST
     Route: 048
  8. HEPARINOID [Concomitant]
     Dosage: DOSE UNKNOWN, APPLIED TO THE BODY
     Route: 062
     Dates: start: 20211214

REACTIONS (8)
  - Thrombocytopenia [Recovered/Resolved]
  - Colon cancer [Unknown]
  - Metastases to peritoneum [Unknown]
  - Thrombocytopenic purpura [Recovered/Resolved]
  - White blood cell count decreased [Recovered/Resolved]
  - Neutrophil count decreased [Recovered/Resolved]
  - Constipation [Unknown]
  - Rash [Recovered/Resolved]

NARRATIVE: CASE EVENT DATE: 20211214
